FAERS Safety Report 7873455-8 (Version None)
Quarter: 2011Q4

REPORT INFORMATION
  Report Type: 
  Country: None (occurrence: None)
  Receive Date: 20111030
  Receipt Date: 20110504
  Transmission Date: 20120403
  Serious: No
  Sender: FDA-Public Use
  Company Number: US-AMGEN-USASP2011023077

PATIENT
  Age: 50 Year
  Sex: Female

DRUGS (4)
  1. PLAQUENIL [Concomitant]
     Dates: start: 20100301
  2. SULFASALAZINE [Concomitant]
     Dates: start: 20100501
  3. METHOTREXATE [Concomitant]
     Dates: start: 20100501
  4. ENBREL [Suspect]
     Indication: RHEUMATOID ARTHRITIS
     Dosage: 50 MG, QWK
     Dates: start: 20110404

REACTIONS (2)
  - BLISTER [None]
  - RASH PRURITIC [None]
